FAERS Safety Report 23175060 (Version 2)
Quarter: 2023Q4

REPORT INFORMATION
  Report Type: Report from Study
  Country: US (occurrence: US)
  Receive Date: 20231112
  Receipt Date: 20231116
  Transmission Date: 20240109
  Serious: Yes (Death, Hospitalization)
  Sender: FDA-Public Use
  Company Number: US-JNJFOC-20231111541

PATIENT
  Age: 36 Year
  Sex: Female

DRUGS (1)
  1. SPRAVATO [Suspect]
     Active Substance: ESKETAMINE
     Indication: Depression
     Dosage: 84 MG, 46 DOSES
     Dates: start: 20221107, end: 20230828

REACTIONS (2)
  - Death [Fatal]
  - Respiratory disorder [Unknown]

NARRATIVE: CASE EVENT DATE: 20230901
